FAERS Safety Report 6779822-8 (Version None)
Quarter: 2010Q2

REPORT INFORMATION
  Report Type: 
  Country: None (occurrence: None)
  Receive Date: 20100618
  Receipt Date: 20100607
  Transmission Date: 20101027
  Serious: Yes (Other)
  Sender: FDA-Public Use
  Company Number: US-PFIZER INC-2010070956

PATIENT
  Sex: Male

DRUGS (1)
  1. SUTENT [Suspect]
     Dosage: 37.5 MG, 1X/DAY
     Route: 048
     Dates: start: 20100517

REACTIONS (2)
  - OROPHARYNGEAL PAIN [None]
  - SWOLLEN TONGUE [None]
